FAERS Safety Report 7889217-1 (Version None)
Quarter: 2011Q4

REPORT INFORMATION
  Report Type: 
  Country: None (occurrence: None)
  Receive Date: 20111103
  Receipt Date: 20111027
  Transmission Date: 20120403
  Serious: Yes (Hospitalization, Other)
  Sender: FDA-Public Use
  Company Number: US-MERCK-1108USA02954

PATIENT
  Age: 62 Year
  Sex: Female

DRUGS (13)
  1. FOSAMAX [Suspect]
     Indication: OSTEOPOROSIS
     Route: 048
     Dates: start: 19971108, end: 20071001
  2. EVOXAC [Concomitant]
     Indication: DRY MOUTH
     Route: 065
     Dates: start: 20030101
  3. PLAQUENIL [Concomitant]
     Indication: SJOGREN'S SYNDROME
     Route: 065
     Dates: start: 19951001
  4. NUMOISYN LOZENGES [Concomitant]
     Indication: DRY MOUTH
     Route: 065
     Dates: start: 20080101
  5. ALENDRONATE SODIUM [Suspect]
     Indication: OSTEOPOROSIS
     Route: 048
     Dates: start: 20090301, end: 20090801
  6. CITRACAL + D [Concomitant]
     Route: 048
     Dates: start: 19980101
  7. VITAMINS (UNSPECIFIED) [Concomitant]
     Route: 065
     Dates: start: 19980101
  8. MYCOPHENOLATE MOFETIL (CELLCEPT) [Concomitant]
     Indication: SJOGREN'S SYNDROME
     Route: 065
     Dates: start: 20080201, end: 20090801
  9. RESTASIS [Concomitant]
     Indication: DRY EYE
     Route: 065
     Dates: start: 20030101
  10. FOSAMAX PLUS D [Suspect]
     Indication: OSTEOPOROSIS
     Route: 048
     Dates: start: 20071001, end: 20090301
  11. ESTROPIPATE [Concomitant]
     Route: 048
     Dates: start: 19810101, end: 20030101
  12. LIPITOR [Concomitant]
     Indication: BLOOD CHOLESTEROL INCREASED
     Route: 065
     Dates: start: 20030401
  13. FOSAMAX [Suspect]
     Route: 048

REACTIONS (7)
  - TOOTH DISORDER [None]
  - FEMUR FRACTURE [None]
  - SQUAMOUS CELL CARCINOMA [None]
  - JOINT INJURY [None]
  - ARTHROPATHY [None]
  - VITAMIN D DEFICIENCY [None]
  - MALABSORPTION [None]
